FAERS Safety Report 4980510-9 (Version None)
Quarter: 2006Q2

REPORT INFORMATION
  Report Type: 
  Country: None (occurrence: None)
  Receive Date: 20060424
  Receipt Date: 20060308
  Transmission Date: 20061013
  Serious: Yes (Death, Hospitalization, Other)
  Sender: FDA-Public Use
  Company Number: JP-BRISTOL-MYERS SQUIBB COMPANY-13316286

PATIENT
  Age: 89 Year
  Sex: Male

DRUGS (15)
  1. GATIFLOXACIN [Suspect]
     Indication: BRONCHITIS
     Route: 048
     Dates: start: 20060216, end: 20060223
  2. MUCOTRON [Concomitant]
     Route: 048
     Dates: start: 20060216, end: 20060223
  3. LEFTOSE [Concomitant]
     Route: 048
     Dates: start: 20060216, end: 20060223
  4. THEO-DUR [Concomitant]
     Route: 048
  5. RIFATAC L [Concomitant]
     Route: 048
  6. PANTOSIN [Concomitant]
     Route: 048
  7. MAGNESIUM OXIDE [Concomitant]
     Route: 048
  8. ADENOSINE TRIPHOSPHATE DISODIUM [Concomitant]
     Route: 048
  9. NITORBIN [Concomitant]
     Route: 048
  10. TICLOPIDINE HCL [Concomitant]
     Route: 048
  11. FAMOTER [Concomitant]
     Route: 048
  12. ZANTAC [Concomitant]
     Route: 048
  13. FRANDOL TAPE S [Concomitant]
     Route: 062
  14. MUCOSERUM [Concomitant]
     Route: 048
     Dates: start: 20060303, end: 20060304
  15. NORFLOXACIN [Concomitant]
     Route: 048
     Dates: start: 20060303, end: 20060304

REACTIONS (10)
  - ANOREXIA [None]
  - BLOOD GLUCOSE INCREASED [None]
  - CARDIAC FAILURE [None]
  - DEHYDRATION [None]
  - DYSPNOEA [None]
  - HALLUCINATION [None]
  - HALLUCINATION, VISUAL [None]
  - HYPOGLYCAEMIA [None]
  - PNEUMONIA [None]
  - SHOCK [None]
